FAERS Safety Report 23443945 (Version 3)
Quarter: 2024Q1

REPORT INFORMATION
  Report Type: Spontaneous
  Country: JP (occurrence: JP)
  Receive Date: 20240125
  Receipt Date: 20240223
  Transmission Date: 20240410
  Serious: Yes (Other)
  Sender: FDA-Public Use
  Company Number: JP-NShinyaku-EVA202400292ZZLILLY

PATIENT
  Age: 87 Year
  Sex: Female

DRUGS (1)
  1. ADCIRCA [Suspect]
     Active Substance: TADALAFIL
     Indication: Product used for unknown indication
     Dosage: 20 MG, UNKNOWN
     Route: 048

REACTIONS (1)
  - Renal disorder [Unknown]
